FAERS Safety Report 4353251-9 (Version None)
Quarter: 2004Q2

REPORT INFORMATION
  Report Type: 
  Country: None (occurrence: None)
  Receive Date: 20040429
  Receipt Date: 20040420
  Transmission Date: 20050107
  Serious: Yes (Hospitalization)
  Sender: FDA-Public Use
  Company Number: REL-RIR-115

PATIENT
  Age: 59 Year
  Sex: Female

DRUGS (3)
  1. RYTHMOL [Suspect]
     Indication: EXTRASYSTOLES
     Dosage: 600 MG QD ORAL
     Route: 048
     Dates: start: 19991107, end: 19991220
  2. PREDNISONE TAB [Suspect]
     Dosage: 45  MG, ORAL
     Route: 048
     Dates: start: 19991117, end: 19991220
  3. VIBRAMCINE [Concomitant]

REACTIONS (7)
  - ATRIOVENTRICULAR BLOCK COMPLETE [None]
  - BRADYCARDIA [None]
  - FALL [None]
  - GRAND MAL CONVULSION [None]
  - HYPERTONIA [None]
  - LOSS OF CONSCIOUSNESS [None]
  - MALAISE [None]
